FAERS Safety Report 14743763 (Version 2)
Quarter: 2018Q2

REPORT INFORMATION
  Report Type: Spontaneous
  Country: RO (occurrence: RO)
  Receive Date: 20180410
  Receipt Date: 20180413
  Transmission Date: 20180711
  Serious: Yes (Other)
  Sender: FDA-Public Use
  Company Number: PHHY2018RO060035

PATIENT
  Sex: Male

DRUGS (2)
  1. AMPICILLIN [Suspect]
     Active Substance: AMPICILLIN
     Indication: PROPHYLAXIS
     Dosage: 100 MG/KG, Q12H
     Route: 065
  2. GENTAMICIN. [Suspect]
     Active Substance: GENTAMICIN
     Indication: PROPHYLAXIS
     Dosage: 4 MG/KG, QD
     Route: 065

REACTIONS (3)
  - Bacterial disease carrier [Recovering/Resolving]
  - Dysbacteriosis [Recovering/Resolving]
  - Pathogen resistance [Recovering/Resolving]
